FAERS Safety Report 5131099-5 (Version None)
Quarter: 2006Q3

REPORT INFORMATION
  Report Type: 
  Country: None (occurrence: None)
  Receive Date: 20060825
  Receipt Date: 20060508
  Transmission Date: 20061208
  Serious: Yes (Other)
  Sender: FDA-Public Use
  Company Number: 2006056016

PATIENT
  Age: 17 Year
  Sex: Female

DRUGS (2)
  1. VFEND [Suspect]
     Indication: ASPERGILLOSIS
  2. COUMADIN [Concomitant]

REACTIONS (3)
  - ENCEPHALOPATHY [None]
  - HALLUCINATION [None]
  - MENTAL STATUS CHANGES [None]
